FAERS Safety Report 22060835 (Version 3)
Quarter: 2024Q1

REPORT INFORMATION
  Report Type: Spontaneous
  Country: US (occurrence: US)
  Receive Date: 20230303
  Receipt Date: 20240117
  Transmission Date: 20240410
  Serious: No
  Sender: FDA-Public Use
  Company Number: US-SK LIFE SCIENCE, INC.-SKPVG-2023-000213

PATIENT

DRUGS (8)
  1. XCOPRI [Suspect]
     Active Substance: CENOBAMATE
     Indication: Epilepsy
     Dosage: UNK
     Route: 048
  2. XCOPRI [Suspect]
     Active Substance: CENOBAMATE
     Dosage: 300 MILLIGRAM, QD
     Route: 048
     Dates: end: 20230222
  3. XCOPRI [Suspect]
     Active Substance: CENOBAMATE
     Dosage: 300MG TOTAL, TWO 150MG TABLETS
     Route: 048
  4. VIMPAT [Concomitant]
     Active Substance: LACOSAMIDE
     Indication: Product used for unknown indication
     Dosage: 600 MILLIGRAM, (200MG IN THE MORNING, AFTERNOON, AND NIGHT)
     Route: 065
  5. VIMPAT [Concomitant]
     Active Substance: LACOSAMIDE
     Dosage: 100MG IN THE MORNING AND 150MG IN THE EVENING
     Route: 065
  6. LEVETIRACETAM [Concomitant]
     Active Substance: LEVETIRACETAM
     Indication: Product used for unknown indication
     Dosage: 2000MG IN THE MORNING, 500MG IN THE AFTERNOON, 2000MG IN THE EVENING
     Route: 065
  7. ZONISAMIDE [Concomitant]
     Active Substance: ZONISAMIDE
     Indication: Product used for unknown indication
     Dosage: 400MG IN THE EVENING AND 50MG IN THE AFTERNOON
     Route: 065
  8. VITAMINS NOS [Concomitant]
     Active Substance: VITAMINS
     Indication: Product used for unknown indication
     Dosage: UNK
     Route: 065

REACTIONS (6)
  - Seizure [Recovered/Resolved]
  - Wrist fracture [Recovered/Resolved]
  - Pain [Recovered/Resolved]
  - Aura [Recovered/Resolved]
  - Seizure [Recovered/Resolved]
  - Pruritus [Recovered/Resolved]

NARRATIVE: CASE EVENT DATE: 20230222
